FAERS Safety Report 19449966 (Version 1)
Quarter: 2021Q2

REPORT INFORMATION
  Report Type: Spontaneous
  Country: US (occurrence: US)
  Receive Date: 20210622
  Receipt Date: 20210622
  Transmission Date: 20210717
  Serious: No
  Sender: FDA-Public Use
  Company Number: US-TAKEDA-2021TUS038967

PATIENT
  Sex: Female

DRUGS (1)
  1. DEXILANT [Suspect]
     Active Substance: DEXLANSOPRAZOLE
     Indication: ABDOMINAL PAIN UPPER
     Dosage: 60 MILLIGRAM, QD
     Route: 065
     Dates: start: 20210616

REACTIONS (4)
  - Off label use [Unknown]
  - Eructation [Unknown]
  - Flatulence [Unknown]
  - Constipation [Unknown]
